FAERS Safety Report 23068162 (Version 1)
Quarter: 2023Q4

REPORT INFORMATION
  Report Type: Spontaneous
  Country: US (occurrence: None)
  Receive Date: 20231012
  Receipt Date: 20231012
  Transmission Date: 20240110
  Serious: Yes (Hospitalization)
  Sender: FDA-Public Use
  Company Number: None

PATIENT
  Age: 72 Year
  Sex: Male

DRUGS (1)
  1. ZYTIGA [Suspect]
     Active Substance: ABIRATERONE ACETATE
     Dosage: FREQUENCY : DAILY;?

REACTIONS (7)
  - Tonsillitis [None]
  - Fall [None]
  - Balance disorder [None]
  - Muscular weakness [None]
  - Fatigue [None]
  - Blood pressure increased [None]
  - Laboratory test abnormal [None]
